FAERS Safety Report 4336898-5 (Version None)
Quarter: 2004Q2

REPORT INFORMATION
  Report Type: 
  Country: None (occurrence: None)
  Receive Date: 20040407
  Receipt Date: 20040319
  Transmission Date: 20050107
  Serious: Yes (Hospitalization)
  Sender: FDA-Public Use
  Company Number: USA040362651

PATIENT
  Sex: Female
  Weight: 100 kg

DRUGS (2)
  1. REGULAR INSULIN [Suspect]
     Indication: DIABETES MELLITUS NON-INSULIN-DEPENDENT
     Dates: start: 19940101
  2. NPH ILETIN II (PORK) [Suspect]
     Indication: DIABETES MELLITUS NON-INSULIN-DEPENDENT
     Dates: start: 19840101

REACTIONS (8)
  - ASTHENIA [None]
  - DIZZINESS [None]
  - DRUG HYPERSENSITIVITY [None]
  - DYSPNOEA [None]
  - FOOD POISONING [None]
  - OTITIS EXTERNA [None]
  - PNEUMONIA [None]
  - WEIGHT INCREASED [None]
